FAERS Safety Report 6003765-0 (Version None)
Quarter: 2008Q4

REPORT INFORMATION
  Report Type: 
  Country: None (occurrence: None)
  Receive Date: 20081216
  Receipt Date: 20081209
  Transmission Date: 20090506
  Serious: Yes (Other)
  Sender: FDA-Public Use
  Company Number: PHHY2008DE31497

PATIENT
  Age: 50 Year
  Sex: Female
  Weight: 108 kg

DRUGS (3)
  1. RASILEZ [Suspect]
     Indication: HYPERTENSION
     Dosage: 150 MG PER DAY
     Route: 048
     Dates: start: 20081008, end: 20081108
  2. ALLOPURINOL [Concomitant]
     Indication: HYPERURICAEMIA
     Dosage: 100 MG PER DAY
     Route: 048
  3. DIOVAN HCT [Concomitant]
     Indication: HYPERTENSION
     Dosage: 160/25
     Route: 048

REACTIONS (4)
  - BLOOD SODIUM DECREASED [None]
  - HYPOKALAEMIA [None]
  - NAUSEA [None]
  - RENAL FAILURE ACUTE [None]
